FAERS Safety Report 14068575 (Version 8)
Quarter: 2018Q2

REPORT INFORMATION
  Report Type: Spontaneous
  Country: US (occurrence: US)
  Receive Date: 20171010
  Receipt Date: 20180504
  Transmission Date: 20180711
  Serious: Yes (Other)
  Sender: FDA-Public Use
  Company Number: US-PFIZER INC-2017434718

PATIENT
  Age: 67 Year
  Sex: Female
  Weight: 86 kg

DRUGS (11)
  1. FASLODEX [Concomitant]
     Active Substance: FULVESTRANT
     Dosage: 1 DF, MONTHLY (1 SHOT )
  2. XGEVA [Concomitant]
     Active Substance: DENOSUMAB
     Indication: BONE DISORDER
     Dosage: 1 SHOT (DF), IN THE BELLY EACH MONTH
     Dates: start: 201705
  3. IBRANCE [Suspect]
     Active Substance: PALBOCICLIB
     Dosage: 125 MG, CYCLIC (ONCE A DAY FOR 21 DAYS, 7 DAYS OFF)
     Route: 048
     Dates: start: 2017, end: 201710
  4. IBRANCE [Suspect]
     Active Substance: PALBOCICLIB
     Dosage: 125 MG, CYCLIC, (ONCE A DAY FOR 21 DAYS-THEN 7 DAYS OFF)
  5. FASLODEX [Concomitant]
     Active Substance: FULVESTRANT
     Indication: OESTROGEN RECEPTOR ASSAY
     Dosage: 2 SHOTS (DF), FIRST MONTH
     Dates: start: 201705
  6. IBRANCE [Suspect]
     Active Substance: PALBOCICLIB
     Dosage: 125 MG, DAILY
     Route: 048
  7. FASLODEX [Concomitant]
     Active Substance: FULVESTRANT
     Indication: BREAST CANCER METASTATIC
     Dosage: 3 SHOTS (DF), TWO WEEKS APART
  8. IBRANCE [Suspect]
     Active Substance: PALBOCICLIB
     Dosage: UNK
     Dates: start: 20171020, end: 20171109
  9. FASLODEX [Concomitant]
     Active Substance: FULVESTRANT
     Dosage: 2 SHOTS (DF), ONE SHOT IN EACH BUTTOCKS ONCE A MONTH
  10. LOVASTATIN. [Concomitant]
     Active Substance: LOVASTATIN
     Indication: BLOOD CHOLESTEROL
     Dosage: 20 MG, ONCE A DAY
     Route: 048
     Dates: start: 2014
  11. IBRANCE [Suspect]
     Active Substance: PALBOCICLIB
     Indication: BREAST CANCER METASTATIC
     Dosage: 125 MG, ONCE DAILY (HALF HOUR AFTER EVENING MEAL)
     Route: 048
     Dates: start: 201705, end: 2017

REACTIONS (8)
  - Neutrophil count decreased [Recovering/Resolving]
  - Gastrooesophageal reflux disease [Recovered/Resolved]
  - Neutropenia [Unknown]
  - Dry eye [Unknown]
  - Lacrimation increased [Unknown]
  - Condition aggravated [Recovered/Resolved]
  - Dyspepsia [Unknown]
  - Fatigue [Unknown]

NARRATIVE: CASE EVENT DATE: 20170815
